FAERS Safety Report 10078393 (Version 1)
Quarter: 2014Q2

REPORT INFORMATION
  Report Type: Spontaneous
  Country: US (occurrence: US)
  Receive Date: 20140415
  Receipt Date: 20140415
  Transmission Date: 20141212
  Serious: No
  Sender: FDA-Public Use
  Company Number: US-009507513-1404USA007626

PATIENT
  Sex: 0

DRUGS (4)
  1. TEMOZOLOMIDE [Suspect]
     Indication: NEUROENDOCRINE TUMOUR
     Dosage: 150-200 MG/M2 ON DAYS 10
     Route: 048
  2. TEMOZOLOMIDE [Suspect]
     Dosage: 150-200 MG/M2 ON DAYS 14
     Route: 048
  3. CAPECITABINE [Suspect]
     Indication: NEUROENDOCRINE TUMOUR
     Dosage: 600 MG/M2, BID FOR 14 DAYS
  4. YTTRIUM-90 [Suspect]
     Indication: NEUROENDOCRINE TUMOUR
     Dosage: UNK

REACTIONS (2)
  - Thrombocytopenia [Unknown]
  - Fatigue [Unknown]
